FAERS Safety Report 5443264-8 (Version None)
Quarter: 2007Q3

REPORT INFORMATION
  Report Type: 
  Country: None (occurrence: None)
  Receive Date: 20070830
  Receipt Date: 20070820
  Transmission Date: 20080115
  Serious: Yes (Other)
  Sender: FDA-Public Use
  Company Number: 07H-009-0313096-00

PATIENT
  Age: 65 Year
  Sex: Male

DRUGS (5)
  1. VANCOMYCIN HYDROCHLORIDE [Suspect]
     Indication: SYSTEMIC ANTIBACTERIAL THERAPY
  2. IMIPENEM (IMIPENEM) [Concomitant]
  3. TACROLIMUS [Concomitant]
  4. PREDNISONE TAB [Concomitant]
  5. METHYLPREDNISOLONE [Concomitant]

REACTIONS (2)
  - ERYTHEMA MULTIFORME [None]
  - LINEAR IGA DISEASE [None]
